FAERS Safety Report 7539060-8 (Version None)
Quarter: 2011Q2

REPORT INFORMATION
  Report Type: 
  Country: None (occurrence: None)
  Receive Date: 20110610
  Receipt Date: 19970707
  Transmission Date: 20111010
  Serious: Yes (Other)
  Sender: FDA-Public Use
  Company Number: PHHO1997BR04098

PATIENT
  Age: 61 Year
  Sex: Female
  Weight: 75.9 kg

DRUGS (1)
  1. DIOVAN [Suspect]
     Dosage: 80 MG / DAY
     Route: 048
     Dates: start: 19970607

REACTIONS (2)
  - DIZZINESS [None]
  - LABYRINTHITIS [None]
